FAERS Safety Report 8229667-7 (Version None)
Quarter: 2012Q1

REPORT INFORMATION
  Report Type: 
  Country: None (occurrence: None)
  Receive Date: 20120322
  Receipt Date: 20120307
  Transmission Date: 20120608
  Serious: Yes (Hospitalization, Other)
  Sender: FDA-Public Use
  Company Number: PHHY2011JP72075

PATIENT
  Sex: Male
  Weight: 10 kg

DRUGS (41)
  1. PROGRAF [Suspect]
     Dosage: 2.8 MG,
     Route: 048
     Dates: start: 20100614, end: 20100630
  2. PROGRAF [Suspect]
     Dosage: 2.8 MG,
     Route: 048
     Dates: start: 20100712, end: 20100719
  3. PROGRAF [Suspect]
     Dosage: 2 MG,
     Route: 048
     Dates: start: 20100720, end: 20100804
  4. PROGRAF [Suspect]
     Dosage: 1.6 MG,
     Route: 048
     Dates: start: 20100902, end: 20101013
  5. PREDNISOLONE [Concomitant]
     Dosage: 15 MG,
     Route: 048
  6. PRECEDEX [Concomitant]
     Dosage: UNK UKN, UNK
  7. NICARDIPINE HCL [Concomitant]
     Dosage: UNK UKN, UNK
  8. PROGRAF [Suspect]
     Dosage: 0.4 MG,
     Route: 042
     Dates: start: 20100603, end: 20100604
  9. GAMIMUNE N 5% [Concomitant]
     Dosage: UNK UKN, UNK
  10. PROGRAF [Suspect]
     Dosage: 2.8 MG,
     Route: 048
     Dates: start: 20100609, end: 20100609
  11. PROGRAF [Suspect]
     Dosage: 1.6 MG,
     Route: 048
     Dates: start: 20100805, end: 20100829
  12. PREDNISOLONE [Concomitant]
     Dosage: 10 MG,
     Route: 048
  13. PROGRAF [Suspect]
     Dosage: 3.2 MG,
     Route: 048
     Dates: start: 20100701, end: 20100711
  14. PROGRAF [Suspect]
     Dosage: 1.2 MG,
     Route: 048
     Dates: start: 20101014, end: 20101121
  15. PREDNISOLONE [Concomitant]
     Dosage: 5 MG,
     Route: 048
  16. PREDNISOLONE [Concomitant]
     Dosage: 3 MG,
     Route: 048
  17. SIMULECT [Suspect]
     Dosage: 10 MG,
     Route: 042
     Dates: start: 20100606, end: 20100606
  18. PROGRAF [Suspect]
     Indication: RENAL TRANSPLANT
     Dosage: 0.6 MG,
     Route: 042
     Dates: start: 20100602, end: 20100602
  19. PROGRAF [Suspect]
     Dosage: 1.6 MG,
     Route: 048
     Dates: start: 20100606, end: 20100606
  20. PROGRAF [Suspect]
     Dosage: 1.8 MG,
     Route: 048
     Dates: start: 20100608, end: 20100608
  21. PROGRAF [Suspect]
     Dosage: UNK UKN, UNK
     Route: 048
     Dates: start: 20101122, end: 20101215
  22. PROGRAF [Suspect]
     Dosage: UNK UKN, UNK
     Route: 048
     Dates: start: 20101216
  23. MYCOPHENOLATE MOFETIL (CELLCEPT) [Suspect]
     Indication: RENAL TRANSPLANT
     Dosage: 500 MG
     Route: 048
     Dates: end: 20100622
  24. PREDNISOLONE [Concomitant]
     Dosage: 12.5 MG,
     Route: 048
  25. CEFAZOLIN [Concomitant]
     Dosage: 600 MG,
     Route: 042
     Dates: start: 20100606
  26. LANSOPRAZOLE [Concomitant]
     Dosage: UNK UKN, UNK
  27. SIMULECT [Suspect]
     Indication: RENAL TRANSPLANT
     Dosage: 10 MG,
     Route: 042
     Dates: start: 20100602, end: 20100602
  28. PREDNISOLONE [Suspect]
     Dosage: 24 MG,
     Route: 042
     Dates: start: 20100603, end: 20100604
  29. MYCOPHENOLATE MOFETIL (CELLCEPT) [Suspect]
     Dosage: 500 MG,
     Route: 048
     Dates: start: 20100904, end: 20101109
  30. PREDNISOLONE [Concomitant]
     Indication: RENAL TRANSPLANT
     Dosage: 10 MG,
     Route: 048
     Dates: start: 20100605
  31. MIDAZOLAM HCL [Concomitant]
     Indication: SEDATION
     Dosage: 20 MG, UNK
     Route: 042
     Dates: start: 20100602, end: 20100603
  32. PROGRAF [Suspect]
     Dosage: 3.2 MG,
     Route: 048
     Dates: start: 20100610, end: 20100613
  33. PROGRAF [Suspect]
     Dosage: 1.2 MG,
     Route: 048
     Dates: start: 20100830, end: 20100901
  34. CEFAZOLIN [Concomitant]
     Indication: INFECTION PROPHYLAXIS
     Dosage: 300 MG,
     Route: 042
     Dates: start: 20100603
  35. FENTANYL [Concomitant]
     Dosage: UNK UKN, UNK
  36. DOPAMINE HCL [Concomitant]
     Indication: CARDIAC FAILURE
     Dosage: 100 MG, BID
     Route: 042
     Dates: start: 20100603, end: 20100604
  37. PROGRAF [Suspect]
     Dosage: 0.2 MG,
     Route: 042
     Dates: start: 20100605, end: 20100605
  38. PREDNISOLONE [Suspect]
     Indication: RENAL TRANSPLANT
     Dosage: 20 MG,
     Route: 042
     Dates: start: 20100602, end: 20100602
  39. PREDNISOLONE [Suspect]
     Dosage: 8 MG,
     Route: 042
     Dates: start: 20100605, end: 20100605
  40. MYCOPHENOLATE MOFETIL (CELLCEPT) [Suspect]
     Dosage: 500 MG,
     Route: 048
     Dates: start: 20101114, end: 20101228
  41. PREDNISOLONE [Concomitant]
     Dosage: 7.5 MG,
     Route: 048

REACTIONS (7)
  - PNEUMONIA [None]
  - CYTOMEGALOVIRUS VIRAEMIA [None]
  - HYPERTENSION [None]
  - IRON DEFICIENCY ANAEMIA [None]
  - CARDIAC FAILURE [None]
  - CARDIOMEGALY [None]
  - BRONCHITIS [None]
